FAERS Safety Report 17420912 (Version 1)
Quarter: 2020Q1

REPORT INFORMATION
  Report Type: Spontaneous
  Country: US (occurrence: US)
  Receive Date: 20200214
  Receipt Date: 20200214
  Transmission Date: 20200409
  Serious: Yes (Other)
  Sender: FDA-Public Use
  Company Number: US-BAYER-2020-025653

PATIENT
  Age: 81 Year
  Sex: Female

DRUGS (4)
  1. BAYER LOW DOSE [Suspect]
     Active Substance: ASPIRIN
     Indication: ISCHAEMIC HEART DISEASE PROPHYLAXIS
     Dosage: 1 DF, QD
     Dates: start: 2013
  2. FLINTSTONES WITH IRON CHEWABLE [Suspect]
     Active Substance: MINERALS\VITAMINS
     Indication: IRON DEFICIENCY
     Dosage: 2 DF, QD
     Route: 048
     Dates: start: 201912
  3. HYDROCHLOROTHIAZIDE. [Concomitant]
     Active Substance: HYDROCHLOROTHIAZIDE
     Dosage: UNK
  4. FLINTSTONES GUMMIES [Suspect]
     Active Substance: VITAMINS
     Indication: IRON DEFICIENCY

REACTIONS (6)
  - Haemorrhage [None]
  - Product use in unapproved indication [Unknown]
  - Inappropriate schedule of product administration [None]
  - Blood iron decreased [Unknown]
  - Product prescribing issue [Unknown]
  - Blood count abnormal [Unknown]
